FAERS Safety Report 6584650-2 (Version None)
Quarter: 2010Q1

REPORT INFORMATION
  Report Type: 
  Country: None (occurrence: None)
  Receive Date: 20100217
  Receipt Date: 20100204
  Transmission Date: 20100710
  Serious: Yes (Hospitalization)
  Sender: FDA-Public Use
  Company Number: US-ELI_LILLY_AND_COMPANY-US201002001235

PATIENT
  Sex: Male

DRUGS (18)
  1. GEMCITABINE HCL [Suspect]
     Indication: PANCREATIC CARCINOMA
     Dosage: 1000 MG/M2, UNKNOWN
     Route: 065
     Dates: start: 20090818
  2. OXYCODONE HCL [Concomitant]
     Indication: PAIN
     Dosage: UNK, UNK
     Route: 048
     Dates: start: 20090804
  3. CLONAZEPAM [Concomitant]
     Indication: ANXIETY
     Dosage: UNK, UNK
     Route: 048
     Dates: start: 20090701
  4. BENAZEPRIL HYDROCHLORIDE [Concomitant]
     Indication: HYPERTENSION
     Dosage: UNK, UNK
     Route: 048
     Dates: start: 20090101
  5. OXYCODONE HCL [Concomitant]
     Indication: PAIN
     Dates: start: 20090826
  6. DOCUSATE SODIUM [Concomitant]
     Indication: CONSTIPATION
     Dates: start: 20090827
  7. MACROGOL [Concomitant]
     Indication: CONSTIPATION
     Route: 048
     Dates: start: 20090827
  8. POTASSIUM CHLORIDE [Concomitant]
     Indication: PROPHYLAXIS
     Route: 048
     Dates: start: 20091110
  9. LORAZEPAM [Concomitant]
     Indication: PROPHYLAXIS
     Route: 048
     Dates: start: 20090818
  10. PROCHLORPERAZINE EDISYLATE [Concomitant]
     Indication: PROPHYLAXIS
     Route: 048
     Dates: start: 20090818
  11. ONDANSETRON HYDROCHLORIDE [Concomitant]
     Indication: NAUSEA
     Route: 048
     Dates: start: 20091207
  12. ONDANSETRON HYDROCHLORIDE [Concomitant]
     Route: 042
     Dates: start: 20090818
  13. DEXAMETHASONE [Concomitant]
     Indication: NAUSEA
     Route: 048
     Dates: start: 20091207
  14. ONE A DAY PLUS IRON [Concomitant]
     Indication: VITAMIN SUPPLEMENTATION
     Route: 048
     Dates: start: 20091216
  15. DARBEPOETIN ALFA [Concomitant]
     Indication: ANAEMIA
     Route: 058
     Dates: start: 20091221
  16. SODIUM CHLORIDE [Concomitant]
     Indication: DEHYDRATION
     Route: 042
     Dates: start: 20090104
  17. FUROSEMIDE [Concomitant]
     Indication: FLUID RETENTION
     Route: 042
     Dates: start: 20100104
  18. SPIRONOLACTONE [Concomitant]
     Indication: FLUID RETENTION
     Route: 048
     Dates: start: 20100111

REACTIONS (1)
  - RENAL FAILURE ACUTE [None]
